FAERS Safety Report 7465911-1 (Version None)
Quarter: 2011Q2

REPORT INFORMATION
  Report Type: 
  Country: None (occurrence: None)
  Receive Date: 20110509
  Receipt Date: 20100415
  Transmission Date: 20111010
  Serious: No
  Sender: FDA-Public Use
  Company Number: US-ALEXION-A200901114

PATIENT
  Sex: Male

DRUGS (3)
  1. FERRLECIT                          /01099901/ [Concomitant]
     Dosage: 250 MG, Q2W X3 (4 DOSES PLANNED)
     Route: 042
  2. SOLIRIS [Suspect]
     Dosage: 900 MG, UNK
     Route: 042
  3. SOLIRIS [Suspect]
     Indication: PAROXYSMAL NOCTURNAL HAEMOGLOBINURIA
     Dosage: UNK
     Dates: start: 20070101

REACTIONS (4)
  - BLOOD TEST ABNORMAL [None]
  - BLOOD IRON DECREASED [None]
  - FATIGUE [None]
  - URINARY TRACT INFECTION [None]
